FAERS Safety Report 4664990-4 (Version None)
Quarter: 2005Q2

REPORT INFORMATION
  Report Type: 
  Country: None (occurrence: None)
  Receive Date: 20050517
  Receipt Date: 20050502
  Transmission Date: 20051028
  Serious: Yes (Hospitalization)
  Sender: FDA-Public Use
  Company Number: EWC041241809

PATIENT
  Age: 60 Year
  Sex: Male

DRUGS (2)
  1. ZYPREXA [Suspect]
     Dosage: 10 MG/1 DAY
     Route: 048
  2. TRILAFON                     (PERPHENAZINE ENANTATE) [Concomitant]

REACTIONS (2)
  - SYNCOPE [None]
  - TRANSIENT ISCHAEMIC ATTACK [None]
